FAERS Safety Report 12828573 (Version 1)
Quarter: 2016Q4

REPORT INFORMATION
  Report Type: Spontaneous
  Country: US (occurrence: US)
  Receive Date: 20161007
  Receipt Date: 20161007
  Transmission Date: 20170207
  Serious: No
  Sender: FDA-Public Use
  Company Number: US-SA-2015SA158761

PATIENT
  Age: 62 Year
  Sex: Female

DRUGS (10)
  1. ALPRAZOLAM. [Concomitant]
     Active Substance: ALPRAZOLAM
  2. ZOLPIDEM TARTRATE. [Concomitant]
     Active Substance: ZOLPIDEM TARTRATE
  3. SIMVASTATIN. [Concomitant]
     Active Substance: SIMVASTATIN
  4. DOXYCYCLINE. [Concomitant]
     Active Substance: DOXYCYCLINE
  5. LYRICA [Concomitant]
     Active Substance: PREGABALIN
  6. PRIMIDONE. [Concomitant]
     Active Substance: PRIMIDONE
  7. AUBAGIO [Suspect]
     Active Substance: TERIFLUNOMIDE
     Indication: MULTIPLE SCLEROSIS
     Route: 048
  8. PROGESTERONE. [Concomitant]
     Active Substance: PROGESTERONE
  9. FLUOXETINE [Concomitant]
     Active Substance: FLUOXETINE HYDROCHLORIDE
  10. ARTHROTEC [Concomitant]
     Active Substance: DICLOFENAC SODIUM\MISOPROSTOL

REACTIONS (7)
  - Fall [Unknown]
  - Fatigue [Unknown]
  - Headache [Unknown]
  - Balance disorder [Unknown]
  - Alopecia [Unknown]
  - Contusion [Unknown]
  - Joint injury [Unknown]

NARRATIVE: CASE EVENT DATE: 201605
